FAERS Safety Report 23634523 (Version 1)
Quarter: 2024Q1

REPORT INFORMATION
  Report Type: Report from Study
  Country: US (occurrence: US)
  Receive Date: 20240315
  Receipt Date: 20240315
  Transmission Date: 20240410
  Serious: Yes (Hospitalization, Other)
  Sender: FDA-Public Use
  Company Number: US-JAZZ PHARMACEUTICALS-2023-US-020062

PATIENT
  Sex: Male

DRUGS (4)
  1. EPIDIOLEX [Suspect]
     Active Substance: CANNABIDIOL
     Indication: Epilepsy
     Dosage: 8 MILLILITER, BID
     Dates: start: 202008
  2. EPIDIOLEX [Suspect]
     Active Substance: CANNABIDIOL
     Indication: Lennox-Gastaut syndrome
     Dosage: 4 MILLILITER, BID
     Route: 048
     Dates: start: 202008
  3. EVEROLIMUS [Suspect]
     Active Substance: EVEROLIMUS
     Indication: Product used for unknown indication
     Dosage: 5 MILLIGRAM
  4. EVEROLIMUS [Suspect]
     Active Substance: EVEROLIMUS
     Dosage: 3 UNK

REACTIONS (3)
  - Seizure [Unknown]
  - Emergency care [Unknown]
  - Drug level increased [Unknown]
